FAERS Safety Report 9677653 (Version 1)
Quarter: 2013Q4

REPORT INFORMATION
  Report Type: Spontaneous
  Country: NL (occurrence: NL)
  Receive Date: 20131108
  Receipt Date: 20131108
  Transmission Date: 20140711
  Serious: Yes (Other)
  Sender: FDA-Public Use
  Company Number: NL-ASTELLAS-2013EU009124

PATIENT
  Sex: 0
  Weight: 72 kg

DRUGS (2)
  1. ENZALUTAMIDE [Suspect]
     Dosage: 1 DF, UNKNOWN/D
     Route: 065
  2. ENZALUTAMIDE [Suspect]
     Dosage: 0.5 DF, UNKNOWN/D
     Route: 065

REACTIONS (1)
  - Myocardial infarction [Unknown]
